FAERS Safety Report 20678896 (Version 1)
Quarter: 2022Q2

REPORT INFORMATION
  Report Type: Spontaneous
  Country: US (occurrence: US)
  Receive Date: 20220406
  Receipt Date: 20220406
  Transmission Date: 20220720
  Serious: Yes (Hospitalization)
  Sender: FDA-Public Use
  Company Number: US-MYLANLABS-2022M1025283

PATIENT
  Age: 38 Year
  Sex: Female

DRUGS (4)
  1. NIFEDIPINE [Suspect]
     Active Substance: NIFEDIPINE
     Indication: Prinzmetal angina
     Dosage: UNK
     Route: 065
  2. NIFEDIPINE [Suspect]
     Active Substance: NIFEDIPINE
     Indication: Hypertension
  3. NICARDIPINE [Suspect]
     Active Substance: NICARDIPINE
     Indication: Prinzmetal angina
     Dosage: UNK
     Route: 022
  4. NITROGLYCERIN [Suspect]
     Active Substance: NITROGLYCERIN
     Indication: Prinzmetal angina
     Dosage: UNK
     Route: 022

REACTIONS (2)
  - Drug ineffective [Unknown]
  - Off label use [Unknown]
